FAERS Safety Report 7298498-7 (Version None)
Quarter: 2011Q1

REPORT INFORMATION
  Report Type: 
  Country: None (occurrence: None)
  Receive Date: 20110217
  Receipt Date: 20110210
  Transmission Date: 20110831
  Serious: Yes (Other)
  Sender: FDA-Public Use
  Company Number: IT-BRISTOL-MYERS SQUIBB COMPANY-14850374

PATIENT
  Age: 46 Year
  Sex: Female

DRUGS (3)
  1. CETUXIMAB [Suspect]
     Indication: COLON CANCER METASTATIC
     Dosage: THEN 250 MG/M2.
     Dates: start: 20050401
  2. PANITUMUMAB [Suspect]
     Indication: COLON CANCER METASTATIC
  3. IRINOTECAN [Suspect]
     Indication: COLON CANCER METASTATIC
     Dates: start: 20050401

REACTIONS (1)
  - STEVENS-JOHNSON SYNDROME [None]
